FAERS Safety Report 18918739 (Version 3)
Quarter: 2021Q1

REPORT INFORMATION
  Report Type: Spontaneous
  Country: US (occurrence: US)
  Receive Date: 20210220
  Receipt Date: 20210319
  Transmission Date: 20210420
  Serious: Yes (Disabling)
  Sender: FDA-Public Use
  Company Number: US-ASTRAZENECA-2021A068416

PATIENT
  Sex: Female
  Weight: 106.1 kg

DRUGS (2)
  1. BYDUREON [Suspect]
     Active Substance: EXENATIDE
     Indication: DIABETES MELLITUS
     Route: 058
     Dates: start: 20210201
  2. BYDUREON [Suspect]
     Active Substance: EXENATIDE
     Indication: WEIGHT CONTROL
     Route: 058
     Dates: start: 20210201

REACTIONS (5)
  - Device leakage [Unknown]
  - Aphasia [Unknown]
  - Product packaging quantity issue [Unknown]
  - Mental impairment [Unknown]
  - Speech disorder [Unknown]
